FAERS Safety Report 9450653 (Version 2)
Quarter: 2013Q3

REPORT INFORMATION
  Report Type: Spontaneous
  Country: IL (occurrence: IL)
  Receive Date: 20130809
  Receipt Date: 20130829
  Transmission Date: 20140515
  Serious: Yes (Hospitalization)
  Sender: FDA-Public Use
  Company Number: IL-ABBOTT-13X-082-1125946-00

PATIENT
  Age: 7 Year
  Sex: Female

DRUGS (4)
  1. VALPROIC ACID [Suspect]
     Indication: EPILEPSY
  2. VALPROIC ACID [Suspect]
  3. SULTHIAME [Concomitant]
     Indication: PRODUCT USED FOR UNKNOWN INDICATION
  4. CLONAZEPAM [Concomitant]
     Indication: PRODUCT USED FOR UNKNOWN INDICATION

REACTIONS (18)
  - PCO2 increased [Unknown]
  - Respiratory acidosis [Recovering/Resolving]
  - Dyspnoea [Unknown]
  - Oxygen saturation decreased [Unknown]
  - Toxicity to various agents [Unknown]
  - Incorrect dose administered [Unknown]
  - Lethargy [Recovering/Resolving]
  - Unresponsive to stimuli [Unknown]
  - Somnolence [Unknown]
  - C-reactive protein increased [Unknown]
  - Hypoproteinaemia [Unknown]
  - Hypoalbuminaemia [Unknown]
  - Oedema peripheral [Unknown]
  - Jugular vein distension [Unknown]
  - Hypophagia [Recovering/Resolving]
  - Metabolic acidosis [Unknown]
  - Blood pH decreased [Unknown]
  - Thrombocytopenia [Recovered/Resolved]
